FAERS Safety Report 9104965 (Version 3)
Quarter: 2013Q2

REPORT INFORMATION
  Report Type: Spontaneous
  Country: GB (occurrence: GB)
  Receive Date: 20130219
  Receipt Date: 20130603
  Transmission Date: 20140414
  Serious: Yes (Disabling, Other)
  Sender: FDA-Public Use
  Company Number: GB-JNJFOC-20130202510

PATIENT
  Age: 76 Year
  Sex: Male

DRUGS (7)
  1. ZYTIGA [Suspect]
     Indication: PROSTATE CANCER METASTATIC
     Route: 048
     Dates: start: 201302
  2. ZYTIGA [Suspect]
     Indication: PROSTATE CANCER METASTATIC
     Route: 048
     Dates: start: 201201, end: 201301
  3. DEXAMETHASONE [Concomitant]
     Route: 065
  4. FENTANYL TRANDERMAL SYSTEM [Concomitant]
     Indication: PAIN
     Route: 062
  5. PARACETAMOL [Concomitant]
     Indication: PAIN
     Route: 065
  6. LANSOPRAZOLE [Concomitant]
     Indication: ULCER
     Route: 065
  7. FRAGMIN [Concomitant]
     Indication: THROMBOSIS PROPHYLAXIS
     Route: 065

REACTIONS (2)
  - Calcification of muscle [Not Recovered/Not Resolved]
  - Pathological fracture [Not Recovered/Not Resolved]
